FAERS Safety Report 7237457-7 (Version None)
Quarter: 2011Q1

REPORT INFORMATION
  Report Type: 
  Country: None (occurrence: None)
  Receive Date: 20110121
  Receipt Date: 20110111
  Transmission Date: 20110831
  Serious: Yes (Life-Threatening, Hospitalization)
  Sender: FDA-Public Use
  Company Number: FR-JNJFOC-20110105150

PATIENT
  Age: 41 Year
  Sex: Female

DRUGS (2)
  1. KETOPROFEN [Concomitant]
     Route: 065
  2. ACETAMINOPHEN AND TRAMADOL HCL [Suspect]
     Indication: MUSCULOSKELETAL PAIN
     Route: 048

REACTIONS (3)
  - LOCKED-IN SYNDROME [None]
  - MALAISE [None]
  - SOMNOLENCE [None]
